FAERS Safety Report 8864259 (Version 1)
Quarter: 2012Q4

REPORT INFORMATION
  Report Type: 
  Country: US (occurrence: US)
  Receive Date: 20121024
  Receipt Date: 20121024
  Transmission Date: 20130627
  Serious: No
  Sender: FDA-Public Use
  Company Number: US-AMGEN-USASP2011066593

PATIENT
  Age: 60 Year
  Sex: Female
  Weight: 59 kg

DRUGS (8)
  1. ENBREL [Suspect]
     Indication: PRODUCT USED FOR UNKNOWN INDICATION
     Dosage: 50 mg, qwk
     Route: 058
  2. ZYRTEC [Concomitant]
     Dosage: 10 mg, UNK
     Route: 048
  3. HYDROXYZINE HCL [Concomitant]
     Dosage: 10 mg, UNK
     Route: 048
  4. MULTIVITAMINS [Concomitant]
     Route: 048
  5. CALCIUM [Concomitant]
     Dosage: 500 mg, UNK
     Route: 048
  6. ASA [Concomitant]
     Dosage: 81 mg, UNK
     Route: 048
  7. IBUPROFEN [Concomitant]
     Dosage: 200 mg, UNK
     Route: 048
  8. VITAMIN D [Concomitant]
     Dosage: 400 IU, UNK
     Route: 048

REACTIONS (2)
  - Protein urine present [Unknown]
  - Sinusitis [Unknown]
